FAERS Safety Report 7647051-1 (Version None)
Quarter: 2011Q3

REPORT INFORMATION
  Report Type: 
  Country: None (occurrence: None)
  Receive Date: 20110801
  Receipt Date: 20110720
  Transmission Date: 20111222
  Serious: Yes (Hospitalization)
  Sender: FDA-Public Use
  Company Number: US-AMGEN-USASP2011037159

PATIENT
  Age: 54 Year
  Sex: Male

DRUGS (1)
  1. ENBREL [Suspect]
     Indication: FELTY'S SYNDROME
     Dosage: 50 MG, QWK
     Dates: start: 20050101, end: 20110621

REACTIONS (3)
  - KNEE ARTHROPLASTY [None]
  - JOINT STIFFNESS [None]
  - PAIN IN EXTREMITY [None]
